FAERS Safety Report 8350152-6 (Version None)
Quarter: 2012Q2

REPORT INFORMATION
  Report Type: 
  Country: None (occurrence: None)
  Receive Date: 20120510
  Receipt Date: 20120508
  Transmission Date: 20120825
  Serious: Yes (Hospitalization)
  Sender: FDA-Public Use
  Company Number: GB-ROCHE-1067162

PATIENT
  Sex: Female
  Weight: 69 kg

DRUGS (3)
  1. HYDROXYCHLOROQUINE [Concomitant]
  2. MABTHERA [Suspect]
     Indication: PRODUCT USED FOR UNKNOWN INDICATION
     Dosage: LAST DOSE PRIOR TO SAE: 22/APR/2010
     Dates: start: 20080125
  3. METHOTREXATE [Concomitant]

REACTIONS (1)
  - URINARY BLADDER RUPTURE [None]
